FAERS Safety Report 7056814-5 (Version None)
Quarter: 2010Q4

REPORT INFORMATION
  Report Type: 
  Country: None (occurrence: None)
  Receive Date: 20101022
  Receipt Date: 20091113
  Transmission Date: 20110411
  Serious: No
  Sender: FDA-Public Use
  Company Number: A0831969A

PATIENT
  Age: 19 Year
  Sex: Female

DRUGS (2)
  1. DUAC [Suspect]
     Indication: ACNE
     Route: 061
     Dates: start: 20090811
  2. LOTION [Suspect]
     Indication: ACNE
     Route: 061

REACTIONS (7)
  - ACNE [None]
  - BLISTER [None]
  - BURNING SENSATION [None]
  - DRUG INEFFECTIVE [None]
  - ERYTHEMA [None]
  - MILIA [None]
  - PRODUCT QUALITY ISSUE [None]
